FAERS Safety Report 24782177 (Version 1)
Quarter: 2024Q4

REPORT INFORMATION
  Report Type: Spontaneous
  Country: US (occurrence: US)
  Receive Date: 20241227
  Receipt Date: 20241227
  Transmission Date: 20250115
  Serious: No
  Sender: Haleon PLC
  Company Number: US-HALEON-2218520

PATIENT

DRUGS (1)
  1. ROBITUSSIN NIGHTTIME COUGH DM SOFT CHEWS [Suspect]
     Active Substance: DEXTROMETHORPHAN HYDROBROMIDE\DOXYLAMINE SUCCINATE
     Indication: Product used for unknown indication

REACTIONS (1)
  - Drug effect less than expected [Unknown]
